FAERS Safety Report 16208436 (Version 1)
Quarter: 2019Q2

REPORT INFORMATION
  Report Type: Spontaneous
  Country: CH (occurrence: CH)
  Receive Date: 20190417
  Receipt Date: 20190417
  Transmission Date: 20190711
  Serious: Yes (Hospitalization)
  Sender: FDA-Public Use
  Company Number: CH-PFIZER INC-2019158819

PATIENT
  Age: 61 Year
  Sex: Female
  Weight: 64 kg

DRUGS (9)
  1. STILNOX [Suspect]
     Active Substance: ZOLPIDEM TARTRATE
     Dosage: 15 MG, DAILY (1.5 DOSAGE FORM)
     Route: 048
  2. STILNOX [Suspect]
     Active Substance: ZOLPIDEM TARTRATE
     Dosage: 75 MG, (ALL THE WEEKLY THERAPY)
     Route: 048
     Dates: start: 20190305, end: 20190307
  3. ALDACTONE [Concomitant]
     Active Substance: SPIRONOLACTONE
     Dosage: 200 MG, 1X/DAY
     Route: 048
  4. GABAPENTIN PFIZER [Suspect]
     Active Substance: GABAPENTIN
     Dosage: 300 MG, DAILY
     Route: 048
  5. GABAPENTIN PFIZER [Suspect]
     Active Substance: GABAPENTIN
     Dosage: 1500 MG, (ALL THE WEEKLY THERAPY)
     Route: 048
     Dates: start: 20190305, end: 20190307
  6. XIFAXAN [Concomitant]
     Active Substance: RIFAXIMIN
     Dosage: 550 MG, 2X/DAY
     Route: 048
  7. CARVEDILOL SANDOZ [Concomitant]
     Active Substance: CARVEDILOL
     Dosage: 1 DF, 3X/DAY
     Route: 048
  8. CIPRALEX [Concomitant]
     Active Substance: ESCITALOPRAM OXALATE
     Dosage: 1 DF, 1X/DAY
     Route: 048
  9. PANTOZOL [Concomitant]
     Active Substance: PANTOPRAZOLE SODIUM
     Dosage: 20 MG, 1X/DAY
     Route: 048

REACTIONS (5)
  - Hallucination, visual [Recovered/Resolved]
  - Confusional state [Recovered/Resolved]
  - Psychomotor retardation [Recovered/Resolved]
  - Disturbance in attention [Recovered/Resolved]
  - Intentional overdose [Unknown]

NARRATIVE: CASE EVENT DATE: 20190305
